FAERS Safety Report 4601127-1 (Version None)
Quarter: 2005Q1

REPORT INFORMATION
  Report Type: 
  Country: None (occurrence: None)
  Receive Date: 20050308
  Receipt Date: 20050227
  Transmission Date: 20050727
  Serious: Yes (Other)
  Sender: FDA-Public Use
  Company Number: PHBS2005IL02911

PATIENT
  Age: 50 Year
  Sex: Female

DRUGS (3)
  1. AREDIA [Suspect]
     Indication: METASTASES TO BONE
     Dosage: 90 MG
     Route: 042
     Dates: start: 20030901, end: 20040901
  2. ARIMIDEX [Concomitant]
     Dates: end: 20040801
  3. FASLODEX [Concomitant]
     Dates: start: 20040801

REACTIONS (2)
  - ASTHENIA [None]
  - NEUROPATHY [None]
